FAERS Safety Report 18480695 (Version 3)
Quarter: 2020Q4

REPORT INFORMATION
  Report Type: Spontaneous
  Country: ID (occurrence: ID)
  Receive Date: 20201109
  Receipt Date: 20201207
  Transmission Date: 20210114
  Serious: Yes (Hospitalization, Other)
  Sender: FDA-Public Use
  Company Number: ID-PFIZER INC-2020426045

PATIENT
  Age: 21 Year
  Sex: Male
  Weight: 85.9 kg

DRUGS (6)
  1. PREDNISOLONE. [Suspect]
     Active Substance: PREDNISOLONE
     Dosage: 100 MG, CYCLIC (D1-5, EVERY THREE WEEKS (100 MG, 3 CYCLIC)
  2. DOXORUBICIN [Suspect]
     Active Substance: DOXORUBICIN
     Dosage: 20 MG, CYCLIC (1-4 EVERY THREE WEEKS (20 MG, 3 CYCLIC)
  3. ETOPOSIDE. [Suspect]
     Active Substance: ETOPOSIDE
     Dosage: 100 MG, CYCLIC (D1--, EVERY THREE WEEKS (100 MG, 3 CYCLIC)
  4. VINCRISTINE SULFATE. [Suspect]
     Active Substance: VINCRISTINE SULFATE
     Dosage: 0.8 MG, CYCLIC (0-8 MG D1-4, EVERY THREE WEEKS (0.8 MG, 3 CYCLIC)
  5. RITUXIMAB. [Suspect]
     Active Substance: RITUXIMAB
     Dosage: 700 MG, CYCLIC (D1, EVERY THREE WEEKS (700 MG, 3 CYCLIC)
  6. CYCLOPHOSPHAMIDE. [Suspect]
     Active Substance: CYCLOPHOSPHAMIDE
     Dosage: 1500 MG, CYCLIC (D5,EVERY THREE WEEKS (1500 MG,3 CYCLIC)

REACTIONS (5)
  - Febrile neutropenia [Recovered/Resolved]
  - Neuropathy peripheral [Recovered/Resolved]
  - Vomiting [Recovered/Resolved]
  - Alopecia [Unknown]
  - Nausea [Recovered/Resolved]

NARRATIVE: CASE EVENT DATE: 202001
